FAERS Safety Report 20663391 (Version 3)
Quarter: 2022Q3

REPORT INFORMATION
  Report Type: Spontaneous
  Country: JP (occurrence: JP)
  Receive Date: 20220401
  Receipt Date: 20220714
  Transmission Date: 20221027
  Serious: Yes (Hospitalization)
  Sender: FDA-Public Use
  Company Number: JP-GSKNCCC-Case-01456292_AE-56404

PATIENT

DRUGS (2)
  1. SOTROVIMAB [Suspect]
     Active Substance: SOTROVIMAB
     Indication: Prophylaxis
     Dosage: 500 MG/8 ML 1V+NORMAL SALINE 50 ML
     Dates: start: 20220326, end: 20220326
  2. SOTROVIMAB [Suspect]
     Active Substance: SOTROVIMAB
     Indication: COVID-19

REACTIONS (2)
  - Hospitalisation [Unknown]
  - Eczema [Unknown]

NARRATIVE: CASE EVENT DATE: 20220327
